FAERS Safety Report 10384047 (Version 9)
Quarter: 2015Q4

REPORT INFORMATION
  Report Type: Report from Study
  Country: CA (occurrence: CA)
  Receive Date: 20140814
  Receipt Date: 20151228
  Transmission Date: 20160304
  Serious: Yes (Hospitalization, Other)
  Sender: FDA-Public Use
  Company Number: PHHY2010CA02065

PATIENT
  Age: 42 Year
  Sex: Male

DRUGS (5)
  1. SANDOSTATIN LAR DEPOT [Suspect]
     Active Substance: OCTREOTIDE ACETATE
     Dosage: 30 MG, QMO ( EVERY 4 WEEKS)
     Route: 030
     Dates: start: 20111027
  2. AFINITOR [Suspect]
     Active Substance: EVEROLIMUS
     Dosage: 10 MG, QD
     Route: 048
     Dates: start: 20110727
  3. SANDOSTATIN LAR DEPOT [Suspect]
     Active Substance: OCTREOTIDE ACETATE
     Indication: PANCREATIC NEUROENDOCRINE TUMOUR
     Dosage: 30 MG, QMO ( EVERY 4 WEEKS)
     Route: 030
     Dates: start: 20090916, end: 20110209
  4. SUTENT [Suspect]
     Active Substance: SUNITINIB MALATE
     Indication: ANTIANGIOGENIC THERAPY
     Dosage: 37.5 MG, QD (ONCE A DAY)
     Route: 048
  5. AFINITOR [Suspect]
     Active Substance: EVEROLIMUS
     Indication: PANCREATIC NEUROENDOCRINE TUMOUR
     Dosage: 10 MG, QD
     Route: 048
     Dates: start: 20090916, end: 20110209

REACTIONS (15)
  - Malaise [Recovering/Resolving]
  - Diarrhoea [Recovering/Resolving]
  - Vomiting [Recovering/Resolving]
  - Blood pressure increased [Unknown]
  - Pyrexia [Recovered/Resolved]
  - Stomatitis [Unknown]
  - Ear infection [Not Recovered/Not Resolved]
  - Flatulence [Recovered/Resolved]
  - Dehydration [Recovering/Resolving]
  - Pyrexia [Recovered/Resolved]
  - Abdominal distension [Recovered/Resolved]
  - Blood glucose increased [Unknown]
  - Ear pain [Unknown]
  - Nausea [Recovered/Resolved]
  - Fatigue [Unknown]

NARRATIVE: CASE EVENT DATE: 20140131
